FAERS Safety Report 4679949-0 (Version None)
Quarter: 2005Q2

REPORT INFORMATION
  Report Type: 
  Country: None (occurrence: None)
  Receive Date: 20050531
  Receipt Date: 20050519
  Transmission Date: 20051028
  Serious: Yes (Hospitalization)
  Sender: FDA-Public Use
  Company Number: B0382399A

PATIENT
  Age: 64 Year
  Sex: Male

DRUGS (4)
  1. ADVAIR DISKUS 100/50 [Suspect]
     Indication: DRUG USE FOR UNKNOWN INDICATION
     Dosage: 1 SEE TEXT / TWICE PER DAY/ INHALED
     Route: 055
     Dates: end: 20050401
  2. CLOPIDOGREL BISULFATE [Concomitant]
  3. MAGNESIUM DIASPORAL [Concomitant]
  4. DOSPIR [Concomitant]

REACTIONS (6)
  - BLOOD LACTATE DEHYDROGENASE INCREASED [None]
  - CHRONIC OBSTRUCTIVE PULMONARY DISEASE [None]
  - CONDITION AGGRAVATED [None]
  - MUSCLE SPASMS [None]
  - MYOPATHY [None]
  - VIRAL INFECTION [None]
